FAERS Safety Report 9703717 (Version 1)
Quarter: 2013Q4

REPORT INFORMATION
  Report Type: Report from Study
  Country: US (occurrence: US)
  Receive Date: 20131122
  Receipt Date: 20131122
  Transmission Date: 20140711
  Serious: Yes (Other)
  Sender: FDA-Public Use
  Company Number: US-JNJFOC-20131109807

PATIENT
  Age: 72 Year
  Sex: Female
  Weight: 76.2 kg

DRUGS (3)
  1. REMICADE [Suspect]
     Indication: RHEUMATOID ARTHRITIS
     Dosage: LAST DOSE
     Route: 042
     Dates: start: 20131014
  2. REMICADE [Suspect]
     Indication: RHEUMATOID ARTHRITIS
     Dosage: INCREASED TO 6 OR 7 DOSE
     Route: 042
  3. REMICADE [Suspect]
     Indication: RHEUMATOID ARTHRITIS
     Route: 042
     Dates: start: 2012

REACTIONS (2)
  - Rheumatoid arthritis [Unknown]
  - Procedural pain [Not Recovered/Not Resolved]
